FAERS Safety Report 15084513 (Version 2)
Quarter: 2018Q3

REPORT INFORMATION
  Report Type: Spontaneous
  Country: FR (occurrence: FR)
  Receive Date: 20180628
  Receipt Date: 20180717
  Transmission Date: 20181010
  Serious: Yes (Other)
  Sender: FDA-Public Use
  Company Number: FR-ABBVIE-18K-056-2399555-00

PATIENT
  Sex: Male

DRUGS (1)
  1. MAVIRET [Suspect]
     Active Substance: GLECAPREVIR\PIBRENTASVIR
     Indication: HEPATITIS C
     Route: 048
     Dates: end: 201806

REACTIONS (4)
  - Furuncle [Unknown]
  - Acne pustular [Unknown]
  - Psoriasis [Unknown]
  - Skin lesion [Unknown]

NARRATIVE: CASE EVENT DATE: 20180620
